FAERS Safety Report 4806115-8 (Version None)
Quarter: 2005Q4

REPORT INFORMATION
  Report Type: 
  Country: None (occurrence: None)
  Receive Date: 20051021
  Receipt Date: 20051004
  Transmission Date: 20060501
  Serious: Yes (Death, Hospitalization)
  Sender: FDA-Public Use
  Company Number: BR-ROCHE-420110

PATIENT
  Age: 53 Year
  Sex: Male

DRUGS (4)
  1. TORADOL [Suspect]
     Indication: POSTOPERATIVE ANALGESIA
     Route: 065
     Dates: start: 20050906, end: 20050906
  2. PROFENID [Suspect]
     Indication: POSTOPERATIVE ANALGESIA
     Route: 065
     Dates: start: 20050906, end: 20050906
  3. NOVALGINA [Concomitant]
     Indication: PREOPERATIVE CARE
     Dates: start: 20050906, end: 20050906
  4. TRAMADOL HCL [Concomitant]
     Dates: start: 20050907, end: 20050907

REACTIONS (3)
  - DYSPNOEA [None]
  - HAEMORRHAGE [None]
  - MOUTH HAEMORRHAGE [None]
